FAERS Safety Report 9394557 (Version 3)
Quarter: 2013Q4

REPORT INFORMATION
  Report Type: Spontaneous
  Country: ES (occurrence: ES)
  Receive Date: 20130711
  Receipt Date: 20131209
  Transmission Date: 20140711
  Serious: Yes (Other)
  Sender: FDA-Public Use
  Company Number: PHHY2013ES071710

PATIENT
  Age: 31 Year
  Sex: Female

DRUGS (1)
  1. GILENYA [Suspect]
     Route: 048
     Dates: start: 201108, end: 201210

REACTIONS (7)
  - Rebound effect [Unknown]
  - Multiple sclerosis relapse [Recovering/Resolving]
  - Hemianopia [Unknown]
  - Paresis [Unknown]
  - Central nervous system lesion [Unknown]
  - Hypoaesthesia [Unknown]
  - Exposure during pregnancy [Unknown]
